FAERS Safety Report 8374281-6 (Version None)
Quarter: 2012Q2

REPORT INFORMATION
  Report Type: 
  Country: None (occurrence: None)
  Receive Date: 20120518
  Receipt Date: 20120518
  Transmission Date: 20120825
  Serious: Yes (Other)
  Sender: FDA-Public Use
  Company Number: None

PATIENT
  Age: 76 Year
  Sex: Male
  Weight: 76.2043 kg

DRUGS (1)
  1. CARVEDILOL [Suspect]

REACTIONS (9)
  - FALL [None]
  - POLLAKIURIA [None]
  - INSOMNIA [None]
  - ANXIETY [None]
  - CARDIOVASCULAR DISORDER [None]
  - DIZZINESS [None]
  - LIBIDO DECREASED [None]
  - DYSPNOEA [None]
  - BALANCE DISORDER [None]
